FAERS Safety Report 16012751 (Version 1)
Quarter: 2019Q1

REPORT INFORMATION
  Report Type: Report from Study
  Country: None (occurrence: US)
  Receive Date: 20190227
  Receipt Date: 20190227
  Transmission Date: 20190418
  Serious: Yes (Other)
  Sender: FDA-Public Use
  Company Number: US-ABBVIE-19S-163-2677625-00

PATIENT
  Age: 53 Year
  Sex: Female

DRUGS (1)
  1. CREON [Suspect]
     Active Substance: PANCRELIPASE AMYLASE\PANCRELIPASE LIPASE\PANCRELIPASE PROTEASE
     Indication: PRODUCT USED FOR UNKNOWN INDICATION
     Route: 048

REACTIONS (18)
  - Interstitial lung disease [Unknown]
  - Ostectomy [Unknown]
  - Incisional hernia [Unknown]
  - Nephrolithiasis [Unknown]
  - Pulmonary mass [Unknown]
  - Impaired gastric emptying [Unknown]
  - Peripheral nerve decompression [Unknown]
  - Pancreatitis chronic [Unknown]
  - Pain [Unknown]
  - Pancreaticoduodenectomy [Unknown]
  - Ulna fracture [Unknown]
  - Affective disorder [Unknown]
  - Gastrooesophageal reflux disease [Unknown]
  - Pancreaticojejunostomy [Unknown]
  - Rhinitis allergic [Unknown]
  - Incisional hernia [Unknown]
  - Headache [Unknown]
  - Sleep apnoea syndrome [Unknown]

NARRATIVE: CASE EVENT DATE: 20140910
